FAERS Safety Report 20309234 (Version 1)
Quarter: 2022Q1

REPORT INFORMATION
  Report Type: Report from Study
  Country: TW (occurrence: TW)
  Receive Date: 20220107
  Receipt Date: 20220107
  Transmission Date: 20220424
  Serious: Yes (Other)
  Sender: FDA-Public Use
  Company Number: TW-NOVARTISPH-NVSC2021TW089212

PATIENT
  Sex: Female

DRUGS (3)
  1. COSENTYX [Suspect]
     Active Substance: SECUKINUMAB
     Indication: Psoriatic arthropathy
     Dosage: 150 MG, UNKNOWN
     Route: 058
  2. METRONIDAZOLE [Concomitant]
     Active Substance: METRONIDAZOLE
     Indication: Product used for unknown indication
     Dosage: UNK, BID
     Route: 065
     Dates: start: 20210529
  3. MOMETASONE FUROATE [Concomitant]
     Active Substance: MOMETASONE FUROATE
     Indication: Product used for unknown indication
     Dosage: TWICE A DAY
     Route: 065

REACTIONS (8)
  - Diabetes mellitus [Unknown]
  - Rosacea [Unknown]
  - Tenderness [Unknown]
  - Swelling [Unknown]
  - Hepatic function abnormal [Unknown]
  - Laboratory test abnormal [Unknown]
  - Rash erythematous [Unknown]
  - Flushing [Unknown]
